FAERS Safety Report 6016922-4 (Version None)
Quarter: 2008Q4

REPORT INFORMATION
  Report Type: 
  Country: None (occurrence: None)
  Receive Date: 20081218
  Receipt Date: 20081207
  Transmission Date: 20090506
  Serious: Yes (Other)
  Sender: FDA-Public Use
  Company Number: CHPA2008US22130

PATIENT
  Age: 4 Year
  Sex: Female
  Weight: 16.6 kg

DRUGS (2)
  1. BENEFIBER W/ WHEAT DEXTRIN (NCH) (WHEAT DEXTRIN) POWDER [Suspect]
     Indication: FAECES HARD
     Dosage: 1 TSP, TID, ORAL : 1 TSP, PRN, ORAL
     Route: 048
     Dates: start: 20070101
  2. INSULIN (INSULIN) [Concomitant]

REACTIONS (2)
  - OVERDOSE [None]
  - TYPE 1 DIABETES MELLITUS [None]
